FAERS Safety Report 10345127 (Version 5)
Quarter: 2015Q1

REPORT INFORMATION
  Report Type: Spontaneous
  Country: JP (occurrence: JP)
  Receive Date: 20140728
  Receipt Date: 20150126
  Transmission Date: 20150720
  Serious: Yes (Hospitalization, Disabling)
  Sender: FDA-Public Use
  Company Number: JP-ASTRAZENECA-2014SE53042

PATIENT
  Age: 15288 Day
  Sex: Female
  Weight: 60 kg

DRUGS (4)
  1. XYLOCAINE [Concomitant]
     Active Substance: LIDOCAINE HYDROCHLORIDE
     Dosage: DOSE UNKNOWN
     Route: 058
     Dates: start: 20140713, end: 20140713
  2. FENTANYL. [Concomitant]
     Active Substance: FENTANYL
     Indication: POSTOPERATIVE ANALGESIA
     Route: 008
     Dates: start: 20140713, end: 20140715
  3. ANAPEINE [Suspect]
     Active Substance: ROPIVACAINE HYDROCHLORIDE
     Indication: POSTOPERATIVE ANALGESIA
     Dosage: 2 MG/ML, 8 MG/HR,TOTAL DOSE: 400 MG
     Route: 008
     Dates: start: 20140713, end: 20140715
  4. MARCAINE [Concomitant]
     Active Substance: BUPIVACAINE HYDROCHLORIDE
     Indication: SPINAL ANAESTHESIA
     Route: 029
     Dates: start: 20140713, end: 20140713

REACTIONS (3)
  - Peroneal nerve palsy postoperative [Recovering/Resolving]
  - Nerve root injury [Unknown]
  - Paralysis [Recovering/Resolving]

NARRATIVE: CASE EVENT DATE: 20140715
